FAERS Safety Report 8715774 (Version 2)
Quarter: 2013Q4

REPORT INFORMATION
  Report Type: Report from Study
  Country: BR (occurrence: BR)
  Receive Date: 20120809
  Receipt Date: 20131007
  Transmission Date: 20140711
  Serious: Yes (Hospitalization)
  Sender: FDA-Public Use
  Company Number: BR-BRISTOL-MYERS SQUIBB COMPANY-16222135

PATIENT
  Age: 64 Year
  Sex: Female

DRUGS (10)
  1. ABATACEPT [Suspect]
     Indication: RHEUMATOID ARTHRITIS
     Dosage: 1DF=125MG/ML.?INTERRUPTED ON 01NOV11
     Route: 058
     Dates: start: 20090122
  2. METHOTREXATE [Suspect]
     Indication: RHEUMATOID ARTHRITIS
     Dates: start: 20080708
  3. PREDNISONE [Suspect]
     Dates: start: 20080708
  4. METFORMINA [Concomitant]
     Dates: start: 20090710
  5. INSULIN NPH [Concomitant]
     Dosage: 1DF=30IU AT MORNING.?    10IU AT NIGHT
     Dates: start: 20090710
  6. AMARYL [Concomitant]
     Dates: start: 20090710
  7. FOLIC ACID [Concomitant]
     Dates: start: 20080318
  8. PROPRANOLOL [Concomitant]
     Indication: HYPERTENSION
     Dates: start: 2005
  9. CAPTOPRIL [Concomitant]
     Indication: HYPERTENSION
     Dates: start: 2005
  10. AMIODARONE [Concomitant]
     Indication: ARRHYTHMIA
     Dates: start: 2005

REACTIONS (1)
  - Vasculitis [Recovered/Resolved]
